FAERS Safety Report 17387083 (Version 1)
Quarter: 2020Q1

REPORT INFORMATION
  Report Type: Report from Study
  Country: US (occurrence: US)
  Receive Date: 20200206
  Receipt Date: 20200206
  Transmission Date: 20200409
  Serious: Yes (Other)
  Sender: FDA-Public Use
  Company Number: US-BAUSCH-BL-2020-002529

PATIENT
  Age: 68 Year
  Sex: Female

DRUGS (8)
  1. APRISO [Suspect]
     Active Substance: MESALAMINE
     Indication: CROHN^S DISEASE
     Dosage: 4 CAPSULES DAILY
     Route: 048
     Dates: start: 2016
  2. CELLCEPT [Concomitant]
     Active Substance: MYCOPHENOLATE MOFETIL\MYCOPHENOLATE MOFETIL HYDROCHLORIDE
     Indication: GLOMERULONEPHRITIS MEMBRANOUS
     Dosage: SHE HAD BEEN ON IT FOR CLOSE TO 2 YEARS
     Dates: start: 201312
  3. ALLOPURINOL. [Concomitant]
     Active Substance: ALLOPURINOL
     Indication: BLOOD URIC ACID INCREASED
  4. ALLOPURINOL. [Concomitant]
     Active Substance: ALLOPURINOL
  5. FERROUS SULFATE. [Concomitant]
     Active Substance: FERROUS SULFATE
     Indication: IRON DEFICIENCY ANAEMIA
  6. APRISO [Suspect]
     Active Substance: MESALAMINE
     Indication: PRODUCT USE IN UNAPPROVED INDICATION
  7. GABAPENTIN. [Concomitant]
     Active Substance: GABAPENTIN
     Indication: PRODUCT USED FOR UNKNOWN INDICATION
  8. CELLCEPT [Concomitant]
     Active Substance: MYCOPHENOLATE MOFETIL\MYCOPHENOLATE MOFETIL HYDROCHLORIDE
     Dosage: DECREASE THE DOSE TO 1000 MG BID FOR 3 MONTHS THEN GRADUALLY GO DOWN

REACTIONS (25)
  - Generalised oedema [Unknown]
  - Acute sinusitis [Unknown]
  - Nephrotic syndrome [Not Recovered/Not Resolved]
  - Chest pain [Unknown]
  - Gastrooesophageal reflux disease [Recovering/Resolving]
  - Chronic obstructive pulmonary disease [Not Recovered/Not Resolved]
  - Vitamin D deficiency [Not Recovered/Not Resolved]
  - Hypoaesthesia [Unknown]
  - Pain in extremity [Unknown]
  - Type V hyperlipidaemia [Unknown]
  - Dyspepsia [Unknown]
  - Crohn^s disease [Unknown]
  - Chronic kidney disease [Not Recovered/Not Resolved]
  - Hypertension [Recovering/Resolving]
  - Mucous stools [Unknown]
  - Large intestine polyp [Unknown]
  - Dermatitis contact [Unknown]
  - Hyperuricaemia [Not Recovered/Not Resolved]
  - Product use in unapproved indication [Unknown]
  - Type 2 diabetes mellitus [Not Recovered/Not Resolved]
  - Orthopnoea [Unknown]
  - Hyperlipidaemia [Unknown]
  - Hypothyroidism [Recovering/Resolving]
  - Arthralgia [Not Recovered/Not Resolved]
  - Colon adenoma [Unknown]

NARRATIVE: CASE EVENT DATE: 2016
